FAERS Safety Report 19198595 (Version 1)
Quarter: 2021Q2

REPORT INFORMATION
  Report Type: Spontaneous
  Country: GB (occurrence: GB)
  Receive Date: 20210430
  Receipt Date: 20210430
  Transmission Date: 20210717
  Serious: Yes (Life-Threatening, Hospitalization, Other)
  Sender: FDA-Public Use
  Company Number: GB-TEVA-2021-GB-1905110

PATIENT
  Age: 64 Year
  Sex: Female

DRUGS (2)
  1. SOLIFENACIN [Suspect]
     Active Substance: SOLIFENACIN
     Indication: STRESS URINARY INCONTINENCE
     Dosage: 5MG
     Route: 048
     Dates: start: 20150404, end: 20210401
  2. ESTROGENS UNSPECIFIED [Concomitant]

REACTIONS (4)
  - Heat stroke [Recovered/Resolved with Sequelae]
  - Hypertension [Unknown]
  - Syncope [Unknown]
  - Anhidrosis [Unknown]
